FAERS Safety Report 22822387 (Version 2)
Quarter: 2024Q3

REPORT INFORMATION
  Report Type: Spontaneous
  Country: FR (occurrence: FR)
  Receive Date: 20230815
  Receipt Date: 20240815
  Transmission Date: 20241017
  Serious: Yes (Death, Other)
  Sender: CHEPLAPHARM
  Company Number: None

PATIENT
  Age: 36 Year
  Sex: Female

DRUGS (3)
  1. CAPECITABINE [Suspect]
     Active Substance: CAPECITABINE
     Indication: Triple negative breast cancer
     Dates: start: 2020
  2. TRASTUZUMAB [Suspect]
     Active Substance: TRASTUZUMAB
     Indication: Triple negative breast cancer
     Dates: start: 2020
  3. TUCATINIB [Suspect]
     Active Substance: TUCATINIB
     Indication: Triple negative breast cancer
     Dates: start: 2020

REACTIONS (3)
  - Placental disorder [Unknown]
  - Abortion induced [Fatal]
  - Exposure during pregnancy [Recovered/Resolved]
